FAERS Safety Report 4555464-X (Version None)
Quarter: 2005Q1

REPORT INFORMATION
  Report Type: 
  Country: None (occurrence: None)
  Receive Date: 20050118
  Receipt Date: 20050118
  Transmission Date: 20050727
  Serious: Yes (Other)
  Sender: FDA-Public Use
  Company Number: None

PATIENT
  Age: 44 Year
  Sex: Male
  Weight: 82.4 kg

DRUGS (1)
  1. SPIRONOLACTONE [Suspect]

REACTIONS (1)
  - GYNAECOMASTIA [None]
